FAERS Safety Report 6074247-5 (Version None)
Quarter: 2009Q1

REPORT INFORMATION
  Report Type: 
  Country: None (occurrence: None)
  Receive Date: 20090211
  Receipt Date: 20090203
  Transmission Date: 20090719
  Serious: Yes (Other)
  Sender: FDA-Public Use
  Company Number: PHEH2008US10674

PATIENT
  Sex: Female

DRUGS (4)
  1. ZOMETA [Suspect]
     Indication: NON-HODGKIN'S LYMPHOMA
     Dosage: UNK
     Route: 042
     Dates: start: 20020401, end: 20050301
  2. ZOMETA [Suspect]
     Indication: B-CELL LYMPHOMA
  3. RITUXAN [Concomitant]
     Indication: B-CELL LYMPHOMA
     Route: 042
  4. FLUDARABINE PHOSPHATE [Concomitant]
     Indication: B-CELL LYMPHOMA
     Route: 042

REACTIONS (7)
  - DEFORMITY [None]
  - EMOTIONAL DISTRESS [None]
  - GINGIVAL SWELLING [None]
  - INFECTION [None]
  - OSTEONECROSIS [None]
  - PAIN IN JAW [None]
  - TOOTH EXTRACTION [None]
